FAERS Safety Report 9284400 (Version 2)
Quarter: 2013Q4

REPORT INFORMATION
  Report Type: Spontaneous
  Country: GB (occurrence: GB)
  Receive Date: 20130510
  Receipt Date: 20131010
  Transmission Date: 20140711
  Serious: Yes (Other)
  Sender: FDA-Public Use
  Company Number: GB-009507513-1305GBR002236

PATIENT
  Age: 40 Year
  Sex: Female
  Weight: 99 kg

DRUGS (8)
  1. BOCEPREVIR [Suspect]
     Indication: HEPATITIS C
     Dosage: 800 MG, UNK
     Route: 048
     Dates: start: 20121227, end: 20130219
  2. PEGYLATED INTERFERON ALFA-2A [Concomitant]
     Dosage: UNK
  3. RIBAVIRIN [Concomitant]
     Dosage: UNK
  4. AMITRIPTYLINE [Concomitant]
  5. BUTRANS [Concomitant]
  6. METFORMIN [Concomitant]
  7. MIRTAZAPINE [Concomitant]
  8. OMEPRAZOLE [Concomitant]

REACTIONS (4)
  - Feeling abnormal [Unknown]
  - Self-injurious ideation [Unknown]
  - Suicidal ideation [Recovering/Resolving]
  - Depressed mood [Unknown]
